FAERS Safety Report 24680458 (Version 3)
Quarter: 2025Q1

REPORT INFORMATION
  Report Type: Report from Study
  Country: CO (occurrence: CO)
  Receive Date: 20241129
  Receipt Date: 20250327
  Transmission Date: 20250408
  Serious: Yes (Other)
  Sender: TAKEDA
  Company Number: CO-TAKEDA-2024TUS119059

PATIENT
  Age: 78 Year
  Sex: Male
  Weight: 65 kg

DRUGS (1)
  1. IXAZOMIB [Suspect]
     Active Substance: IXAZOMIB
     Indication: Plasma cell myeloma

REACTIONS (9)
  - Hallucination, visual [Unknown]
  - Disorientation [Unknown]
  - Amnesia [Unknown]
  - Aggression [Unknown]
  - Hypoacusis [Unknown]
  - Blood creatinine increased [Unknown]
  - Weight increased [Unknown]
  - Insomnia [Unknown]
  - Haemoglobin decreased [Unknown]

NARRATIVE: CASE EVENT DATE: 20250304
